FAERS Safety Report 6892532-1 (Version None)
Quarter: 2010Q3

REPORT INFORMATION
  Report Type: 
  Country: None (occurrence: None)
  Receive Date: 20100731
  Receipt Date: 20080702
  Transmission Date: 20110219
  Serious: No
  Sender: FDA-Public Use
  Company Number: US-PFIZER INC-2008056364

PATIENT
  Sex: Female
  Weight: 90.9 kg

DRUGS (2)
  1. AMLODIPINE [Suspect]
     Indication: HYPERTENSION
     Dates: start: 20080601
  2. NORVASC [Concomitant]
     Dates: end: 20080601

REACTIONS (1)
  - RASH [None]
